FAERS Safety Report 14519294 (Version 2)
Quarter: 2018Q3

REPORT INFORMATION
  Report Type: Spontaneous
  Country: US (occurrence: US)
  Receive Date: 20180212
  Receipt Date: 20180717
  Transmission Date: 20181010
  Serious: Yes (Death, Other)
  Sender: FDA-Public Use
  Company Number: US-PFIZER INC-2018056306

PATIENT
  Age: 59 Year
  Sex: Female

DRUGS (2)
  1. REVATIO [Suspect]
     Active Substance: SILDENAFIL CITRATE
     Indication: BLOOD PRESSURE MEASUREMENT
     Dosage: 20 MG, 3X/DAY
     Route: 048
     Dates: start: 2012
  2. REVATIO [Suspect]
     Active Substance: SILDENAFIL CITRATE
     Indication: PULMONARY HYPERTENSION
     Dosage: 20 MG, 3X/DAY
     Route: 048

REACTIONS (14)
  - Lethargy [Unknown]
  - Decreased appetite [Unknown]
  - Disease progression [Fatal]
  - Head injury [Unknown]
  - Movement disorder [Unknown]
  - Fall [Unknown]
  - Back pain [Unknown]
  - Dizziness [Unknown]
  - Hypopnoea [Unknown]
  - Confusional state [Unknown]
  - Pain [Unknown]
  - Cardiac arrest [Fatal]
  - Somnolence [Unknown]
  - Asthenia [Unknown]

NARRATIVE: CASE EVENT DATE: 20171229
